FAERS Safety Report 8548280-5 (Version None)
Quarter: 2012Q3

REPORT INFORMATION
  Report Type: 
  Country: None (occurrence: None)
  Receive Date: 20120730
  Receipt Date: 20120716
  Transmission Date: 20120928
  Serious: No
  Sender: FDA-Public Use
  Company Number: US-JNJFOC-20120708375

PATIENT
  Sex: Female

DRUGS (4)
  1. FENTANYL-100 [Suspect]
     Indication: PAIN
     Route: 062
     Dates: start: 20120101, end: 20120101
  2. DURAGESIC-100 [Suspect]
     Indication: PAIN
     Route: 062
     Dates: end: 20060101
  3. DURAGESIC-100 [Suspect]
     Route: 062
     Dates: start: 20120711
  4. FENTANYL CITRATE [Suspect]
     Indication: PAIN
     Route: 062
     Dates: start: 20120101, end: 20120710

REACTIONS (3)
  - PRODUCT QUALITY ISSUE [None]
  - ADVERSE EVENT [None]
  - WRONG TECHNIQUE IN DRUG USAGE PROCESS [None]
